FAERS Safety Report 9728863 (Version 1)
Quarter: 2013Q4

REPORT INFORMATION
  Report Type: Spontaneous
  Country: US (occurrence: US)
  Receive Date: 20131204
  Receipt Date: 20131204
  Transmission Date: 20140711
  Serious: No
  Sender: FDA-Public Use
  Company Number: US-BIOGENIDEC-2013BI098093

PATIENT
  Sex: Female

DRUGS (8)
  1. TECFIDERA [Suspect]
     Indication: MULTIPLE SCLEROSIS
     Route: 048
     Dates: start: 20130927
  2. ASPIRIN [Concomitant]
  3. ATENOLOL [Concomitant]
  4. CALCIUM [Concomitant]
  5. CELEXA [Concomitant]
  6. CITALOPRAM HYDROBROMIDE [Concomitant]
  7. FISH OIL [Concomitant]
  8. GABAPENTIN [Concomitant]

REACTIONS (1)
  - Dyspepsia [Unknown]
